FAERS Safety Report 21654300 (Version 2)
Quarter: 2023Q1

REPORT INFORMATION
  Report Type: Report from Study
  Country: ES (occurrence: None)
  Receive Date: 20221129
  Receipt Date: 20230106
  Transmission Date: 20230417
  Serious: Yes (Death)
  Sender: FDA-Public Use
  Company Number: ES-ROCHE-3226192

PATIENT
  Age: 73 Year
  Sex: Female
  Weight: 55.7 kg

DRUGS (17)
  1. TIRAGOLUMAB [Suspect]
     Active Substance: TIRAGOLUMAB
     Indication: Colorectal cancer
     Dosage: FROM  3:30 PM TO 4:00 PM, SHE RECEIVED MOST RECENT DOSE OF TIRAGOLUMAB AT 840 MG PRIOR TO AE/SAE ONS
     Route: 042
     Dates: start: 20211215
  2. ATEZOLIZUMAB [Suspect]
     Active Substance: ATEZOLIZUMAB
     Indication: Colorectal cancer
     Dosage: FROM  3:30 PM TO 4:00 PM, SHE RECEIVED MOST RECENT DOSE OF ATEZOLIZUMAB AT 1680 MG PRIOR TO AE/SAE O
     Route: 041
     Dates: start: 20211215
  3. POLYETHYLENE GLYCOLS [Concomitant]
     Active Substance: POLYETHYLENE GLYCOLS
     Indication: Constipation prophylaxis
     Route: 048
     Dates: start: 20181201
  4. ACETAMINOPHEN [Concomitant]
     Active Substance: ACETAMINOPHEN
     Indication: Tumour pain
     Route: 048
     Dates: start: 20211201
  5. FUROSEMIDE [Concomitant]
     Active Substance: FUROSEMIDE
     Indication: Prophylaxis
     Route: 048
     Dates: start: 20220104
  6. TRAMADOL [Concomitant]
     Active Substance: TRAMADOL
     Indication: Tumour pain
     Route: 048
     Dates: start: 20220104
  7. METAMIZOL [Concomitant]
     Active Substance: METAMIZOLE SODIUM
     Indication: Tumour pain
     Route: 048
     Dates: start: 20220104
  8. LACTULOSE [Concomitant]
     Active Substance: LACTULOSE
     Indication: Constipation prophylaxis
     Route: 048
     Dates: start: 20220111, end: 20220113
  9. LACTULOSE [Concomitant]
     Active Substance: LACTULOSE
     Route: 048
     Dates: start: 20220117, end: 20220120
  10. ALBUMIN HUMAN [Concomitant]
     Active Substance: ALBUMIN HUMAN
     Route: 042
     Dates: start: 20220111, end: 20220113
  11. DEXAMETHASONE [Concomitant]
     Active Substance: DEXAMETHASONE
     Route: 042
     Dates: start: 20220111, end: 20220114
  12. DEXAMETHASONE [Concomitant]
     Active Substance: DEXAMETHASONE
     Route: 048
     Dates: start: 20220115, end: 20220120
  13. MORPHINE [Concomitant]
     Active Substance: MORPHINE
     Indication: Tumour pain
     Route: 048
     Dates: start: 20220112, end: 20220117
  14. OMEPRAZOLE [Concomitant]
     Active Substance: OMEPRAZOLE
     Route: 042
     Dates: start: 20220112, end: 20220115
  15. OXYCODONE [Concomitant]
     Active Substance: OXYCODONE
     Indication: Tumour pain
     Route: 048
     Dates: start: 20220114, end: 20220117
  16. FENTANYL [Concomitant]
     Active Substance: FENTANYL
     Indication: Tumour pain
     Route: 062
     Dates: start: 20220117, end: 20220117
  17. FENTANYL [Concomitant]
     Active Substance: FENTANYL
     Route: 062
     Dates: start: 20220120, end: 20220120

REACTIONS (1)
  - Malignant neoplasm progression [Fatal]

NARRATIVE: CASE EVENT DATE: 20220202
